FAERS Safety Report 6083224-X (Version None)
Quarter: 2009Q1

REPORT INFORMATION
  Report Type: 
  Country: None (occurrence: None)
  Receive Date: 20090219
  Receipt Date: 20090209
  Transmission Date: 20090719
  Serious: Yes (Death)
  Sender: FDA-Public Use
  Company Number: FR-JNJFOC-20090201893

PATIENT
  Age: 88 Year
  Sex: Female

DRUGS (8)
  1. MICONAZOLE NITRATE [Suspect]
     Route: 002
     Dates: start: 20081212, end: 20081213
  2. MICONAZOLE NITRATE [Suspect]
     Indication: DRUG USE FOR UNKNOWN INDICATION
     Dosage: 3 DOSES = 3 SPOONS
     Route: 002
     Dates: start: 20081212, end: 20081213
  3. COUMADIN [Interacting]
     Indication: ATRIAL FIBRILLATION
     Route: 065
  4. PARACETAMOL [Interacting]
     Indication: PAIN
     Route: 048
  5. REMINYL LP [Concomitant]
  6. SOTALEX [Concomitant]
  7. LEVOTHYROX [Concomitant]
  8. IDEOS [Concomitant]

REACTIONS (3)
  - DRUG INTERACTION [None]
  - HAEMATOMA [None]
  - INTERNATIONAL NORMALISED RATIO INCREASED [None]
